FAERS Safety Report 5335930-X (Version None)
Quarter: 2007Q2

REPORT INFORMATION
  Report Type: 
  Country: None (occurrence: None)
  Receive Date: 20070301
  Receipt Date: 20061127
  Transmission Date: 20071010
  Serious: Yes (Hospitalization)
  Sender: FDA-Public Use
  Company Number: 148848USA

PATIENT
  Age: 66 Year
  Sex: Male
  Weight: 84.8226 kg

DRUGS (14)
  1. AZILECT [Suspect]
     Indication: PARKINSON'S DISEASE
     Dosage: 0.5 (0.5 MG, 1 IN 1 D), ORAL
     Route: 048
     Dates: start: 20060901, end: 20061016
  2. VERAPAMIL [Concomitant]
  3. SIMVASTATIN [Concomitant]
  4. ROPINIROLE HCL [Concomitant]
  5. GLIBOMET [Concomitant]
  6. GLIBOMET [Concomitant]
  7. CARBIDOPA [Concomitant]
  8. GLIBENCLAMIDE [Concomitant]
  9. METFORMIN HCL [Concomitant]
  10. DOXAZOSIN MESYLATE [Concomitant]
  11. SPIRONOLACTONE [Concomitant]
  12. STALEVO 100 [Concomitant]
  13. CLOPIDOGREL [Concomitant]
  14. PANTOPRAZOLE SODIUM [Concomitant]

REACTIONS (1)
  - TRANSIENT ISCHAEMIC ATTACK [None]
